FAERS Safety Report 10046911 (Version 1)
Quarter: 2014Q1

REPORT INFORMATION
  Report Type: Spontaneous
  Country: US (occurrence: US)
  Receive Date: 20140331
  Receipt Date: 20140331
  Transmission Date: 20141002
  Serious: Yes (Hospitalization, Other)
  Sender: FDA-Public Use
  Company Number: US-BAYER-2014-045852

PATIENT
  Age: 43 Year
  Sex: Female
  Weight: 83.08 kg

DRUGS (9)
  1. YASMIN [Suspect]
     Dosage: UNK
     Dates: end: 20041027
  2. LORTAB [Concomitant]
     Dosage: UNK
     Route: 048
     Dates: start: 20031224
  3. COLACE [Concomitant]
     Dosage: UNK
     Route: 048
     Dates: start: 20031224
  4. DIAZEPAM [Concomitant]
     Dosage: 5 MG, UNK
     Dates: start: 20040120
  5. ZITHROMAX [Concomitant]
     Route: 061
  6. OCUFLOX [Concomitant]
     Dosage: 0.3 %, UNK
     Route: 061
     Dates: start: 20040204
  7. SUDAFED [Concomitant]
     Dosage: UNK
     Route: 048
     Dates: start: 20040212
  8. SYNTHROID [Concomitant]
     Route: 048
  9. TEQUIN [Concomitant]
     Dosage: 400 MG, UNK
     Route: 048
     Dates: start: 20040220

REACTIONS (1)
  - Deep vein thrombosis [None]
